FAERS Safety Report 8265879-4 (Version None)
Quarter: 2012Q2

REPORT INFORMATION
  Report Type: 
  Country: None (occurrence: None)
  Receive Date: 20120406
  Receipt Date: 20120329
  Transmission Date: 20120825
  Serious: Yes (Hospitalization)
  Sender: FDA-Public Use
  Company Number: FR-GLAXOSMITHKLINE-B0785166A

PATIENT
  Sex: Male

DRUGS (7)
  1. LEVOTHYROXINE SODIUM [Concomitant]
     Dosage: 100MCG PER DAY
  2. EXFORGE [Concomitant]
     Dosage: 80MG PER DAY
  3. ALLOPURINOL [Concomitant]
  4. AVODART [Suspect]
     Indication: BENIGN PROSTATIC HYPERPLASIA
     Dosage: .5MG PER DAY
     Route: 048
     Dates: start: 20101103
  5. SECTRAL [Concomitant]
     Dosage: 200MG PER DAY
  6. PREVISCAN [Concomitant]
  7. FLECAINIDE ACETATE [Concomitant]
     Dosage: 150MG PER DAY

REACTIONS (1)
  - BLOOD CREATINE PHOSPHOKINASE INCREASED [None]
